FAERS Safety Report 24761602 (Version 1)
Quarter: 2024Q4

REPORT INFORMATION
  Report Type: Spontaneous
  Country: US (occurrence: US)
  Receive Date: 20241220
  Receipt Date: 20241220
  Transmission Date: 20250114
  Serious: Yes (Hospitalization, Other)
  Sender: PFIZER
  Company Number: US-PFIZER INC-PV202400165678

PATIENT
  Age: 71 Year
  Sex: Female
  Weight: 69.4 kg

DRUGS (2)
  1. IBRANCE [Suspect]
     Active Substance: PALBOCICLIB
     Indication: Breast cancer female
     Dosage: TAKE 1 CAPSULE PO(ORALLY) QD(ONCE A DAY) FOR 3 WEEKS IN A ROW WITH 1 WEEK OFF
     Route: 048
  2. FULVESTRANT [Concomitant]
     Active Substance: FULVESTRANT
     Dosage: UNK
     Dates: start: 20220616

REACTIONS (11)
  - Cardiac failure [Unknown]
  - Atrial fibrillation [Unknown]
  - Neutropenia [Unknown]
  - Thrombocytopenia [Unknown]
  - Clostridium difficile colitis [Unknown]
  - Anaemia [Unknown]
  - Fatigue [Unknown]
  - Hypertransaminasaemia [Unknown]
  - Glossodynia [Recovered/Resolved]
  - Diarrhoea [Unknown]
  - Abdominal discomfort [Unknown]

NARRATIVE: CASE EVENT DATE: 20220131
